FAERS Safety Report 24994813 (Version 1)
Quarter: 2025Q1

REPORT INFORMATION
  Report Type: Spontaneous
  Country: US (occurrence: US)
  Receive Date: 20250221
  Receipt Date: 20250221
  Transmission Date: 20250409
  Serious: Yes (Hospitalization, Other)
  Sender: RANBAXY
  Company Number: US-SUN PHARMACEUTICAL INDUSTRIES LTD-2025R1-494791

PATIENT
  Age: 4 Month
  Sex: Female

DRUGS (3)
  1. NIACIN [Suspect]
     Active Substance: NIACIN
     Indication: Product used for unknown indication
     Route: 065
  2. BIOTIN [Concomitant]
     Active Substance: BIOTIN
     Indication: Product used for unknown indication
     Route: 065
  3. ZINC SULFATE [Concomitant]
     Active Substance: ZINC SULFATE
     Indication: Product used for unknown indication
     Route: 065

REACTIONS (4)
  - Injury [Unknown]
  - Necrosis [Unknown]
  - Disease recurrence [Unknown]
  - Cerebral atrophy [Unknown]
